FAERS Safety Report 18999996 (Version 1)
Quarter: 2021Q1

REPORT INFORMATION
  Report Type: Spontaneous
  Country: US (occurrence: US)
  Receive Date: 20210312
  Receipt Date: 20210312
  Transmission Date: 20210420
  Serious: No
  Sender: FDA-Public Use
  Company Number: US-BEH-2021129270

PATIENT

DRUGS (1)
  1. HIZENTRA [Suspect]
     Active Substance: HUMAN IMMUNOGLOBULIN G
     Dosage: 8 GRAM/40ML
     Route: 065

REACTIONS (4)
  - Infusion site haemorrhage [Recovered/Resolved]
  - Infusion site pain [Unknown]
  - Infusion site discolouration [Unknown]
  - Infusion site induration [Unknown]
